FAERS Safety Report 4914024-9 (Version None)
Quarter: 2006Q1

REPORT INFORMATION
  Report Type: 
  Country: None (occurrence: None)
  Receive Date: 20060216
  Receipt Date: 20060113
  Transmission Date: 20060701
  Serious: Yes (Other)
  Sender: FDA-Public Use
  Company Number: GB-BRISTOL-MYERS SQUIBB COMPANY-13247333

PATIENT
  Age: 22 Year
  Sex: Male

DRUGS (2)
  1. ABILIFY [Suspect]
     Indication: PSYCHOTIC DISORDER
     Route: 048
     Dates: start: 20060111, end: 20060113
  2. PROZAC [Suspect]
     Indication: DEPRESSION
     Route: 048
     Dates: start: 20051210

REACTIONS (3)
  - DIFFICULTY IN WALKING [None]
  - DYSKINESIA [None]
  - TRISMUS [None]
